FAERS Safety Report 11322645 (Version 1)
Quarter: 2015Q3

REPORT INFORMATION
  Report Type: Spontaneous
  Country: US (occurrence: None)
  Receive Date: 20150729
  Receipt Date: 20150729
  Transmission Date: 20151125
  Serious: No
  Sender: FDA-Public Use
  Company Number: None

PATIENT
  Age: 46 Year
  Sex: Male
  Weight: 56.7 kg

DRUGS (3)
  1. MECLIZINE [Suspect]
     Active Substance: MECLIZINE\MECLIZINE HYDROCHLORIDE
     Indication: DIZZINESS
     Dosage: BY MOUTH
     Dates: start: 20150626, end: 20150629
  2. GINKO BILOBA [Concomitant]
     Active Substance: GINKGO
  3. SAU PALMETTO [Concomitant]

REACTIONS (2)
  - Abdominal pain upper [None]
  - Muscle spasms [None]

NARRATIVE: CASE EVENT DATE: 20150626
